FAERS Safety Report 18043932 (Version 3)
Quarter: 2020Q4

REPORT INFORMATION
  Report Type: Report from Study
  Country: US (occurrence: US)
  Receive Date: 20200720
  Receipt Date: 20201001
  Transmission Date: 20210113
  Serious: No
  Sender: FDA-Public Use
  Company Number: US-SA-2020SA181000

PATIENT

DRUGS (3)
  1. DUPILUMAB [Suspect]
     Active Substance: DUPILUMAB
     Indication: DERMATITIS ATOPIC
     Dosage: 600 MG, 1X
     Route: 058
     Dates: start: 202005, end: 202005
  2. NA [Concomitant]
     Active Substance: SODIUM
  3. DUPILUMAB [Suspect]
     Active Substance: DUPILUMAB
     Dosage: 300 MG, QOW
     Route: 058
     Dates: start: 202005, end: 2020

REACTIONS (9)
  - Paraesthesia [Not Recovered/Not Resolved]
  - Therapeutic response unexpected [Unknown]
  - Localised infection [Recovered/Resolved]
  - Therapeutic response shortened [Unknown]
  - Peripheral swelling [Recovered/Resolved]
  - Hypoaesthesia [Not Recovered/Not Resolved]
  - Joint swelling [Not Recovered/Not Resolved]
  - Skin ulcer [Unknown]
  - Pruritus [Unknown]

NARRATIVE: CASE EVENT DATE: 2020
